FAERS Safety Report 15455896 (Version 1)
Quarter: 2018Q4

REPORT INFORMATION
  Report Type: Spontaneous
  Country: US (occurrence: US)
  Receive Date: 20181002
  Receipt Date: 20181002
  Transmission Date: 20190204
  Serious: No
  Sender: FDA-Public Use
  Company Number: PHEH2018US040697

PATIENT
  Age: 73 Year
  Sex: Female

DRUGS (2)
  1. TAFINLAR [Suspect]
     Active Substance: DABRAFENIB MESYLATE
     Indication: NEOPLASM MALIGNANT
     Dosage: 2 DF, BID
     Route: 048
     Dates: start: 20180911
  2. MEKINIST [Suspect]
     Active Substance: TRAMETINIB DIMETHYL SULFOXIDE
     Indication: NEOPLASM MALIGNANT
     Dosage: 2 MG, QD
     Route: 048
     Dates: start: 20180911

REACTIONS (2)
  - Tremor [Unknown]
  - Pain [Unknown]

NARRATIVE: CASE EVENT DATE: 20180918
